FAERS Safety Report 7347328-3 (Version None)
Quarter: 2011Q1

REPORT INFORMATION
  Report Type: 
  Country: None (occurrence: None)
  Receive Date: 20110311
  Receipt Date: 20110307
  Transmission Date: 20110831
  Serious: Yes (Death)
  Sender: FDA-Public Use
  Company Number: FR-ROCHE-755149

PATIENT
  Sex: Male

DRUGS (8)
  1. ROCEPHIN [Suspect]
     Route: 042
     Dates: start: 20101111, end: 20101122
  2. OXACILLIN [Suspect]
     Dosage: REPRTED AS OXACILLINE PANPHARMA
     Route: 048
     Dates: start: 20101211
  3. VECTARION [Suspect]
     Route: 048
     Dates: start: 20101224
  4. TARDYFERON [Suspect]
     Route: 048
     Dates: start: 20101210
  5. LOVENOX [Suspect]
     Route: 058
     Dates: start: 20101201, end: 20101208
  6. HEPARIN CHOAY [Suspect]
     Route: 058
     Dates: start: 20101218
  7. PREVISCAN [Suspect]
     Route: 048
     Dates: start: 20101201
  8. ACUPAN [Suspect]
     Route: 065
     Dates: start: 20101201

REACTIONS (3)
  - THROMBOCYTOPENIA [None]
  - HAEMORRHAGE [None]
  - SHOCK HAEMORRHAGIC [None]
